FAERS Safety Report 5394517-3 (Version None)
Quarter: 2007Q3

REPORT INFORMATION
  Report Type: 
  Country: None (occurrence: None)
  Receive Date: 20070723
  Receipt Date: 20070710
  Transmission Date: 20080115
  Serious: Yes (Other)
  Sender: FDA-Public Use
  Company Number: US-PURDUE-DEU_2007_0003490

PATIENT
  Age: 75 Year
  Sex: Female

DRUGS (6)
  1. HYDROMORPHONE HCL [Suspect]
     Indication: PROCEDURAL PAIN
     Dosage: 1 MG, Q4H PRN
     Route: 042
  2. VANCOMYCIN [Concomitant]
  3. FUROSEMIDE [Concomitant]
  4. ACE INHIBITOR NOS [Concomitant]
  5. STATIN [Concomitant]
  6. ASPIRIN [Concomitant]

REACTIONS (1)
  - ANAPHYLACTIC REACTION [None]
